APPROVED DRUG PRODUCT: OXYBUTYNIN CHLORIDE
Active Ingredient: OXYBUTYNIN CHLORIDE
Strength: 5MG/5ML
Dosage Form/Route: SYRUP;ORAL
Application: A074868 | Product #001
Applicant: PHARMOBEDIENT CONSULTING
Approved: Feb 12, 1997 | RLD: No | RS: No | Type: DISCN